FAERS Safety Report 9396140 (Version 1)
Quarter: 2013Q3

REPORT INFORMATION
  Report Type: Spontaneous
  Country: DK (occurrence: FR)
  Receive Date: 20130711
  Receipt Date: 20130711
  Transmission Date: 20140515
  Serious: Yes (Hospitalization)
  Sender: FDA-Public Use
  Company Number: FR-FRI-1000046560

PATIENT
  Age: 91 Year
  Sex: Female

DRUGS (8)
  1. ESCITALOPRAM [Suspect]
     Dosage: 2 DF
     Route: 048
  2. KARDEGIC [Suspect]
     Dosage: 1 DF
     Route: 048
  3. TAREG [Concomitant]
  4. LASILIX [Concomitant]
  5. XANAX [Concomitant]
  6. TIAPRIDAL [Concomitant]
  7. LOXEN [Concomitant]
  8. TRANSIPEG [Concomitant]

REACTIONS (2)
  - Gastrointestinal haemorrhage [Not Recovered/Not Resolved]
  - Melaena [Not Recovered/Not Resolved]
